FAERS Safety Report 7565909-9 (Version None)
Quarter: 2011Q2

REPORT INFORMATION
  Report Type: 
  Country: None (occurrence: None)
  Receive Date: 20110623
  Receipt Date: 20110610
  Transmission Date: 20111010
  Serious: Yes (Hospitalization, Other)
  Sender: FDA-Public Use
  Company Number: IT-ELI_LILLY_AND_COMPANY-IT201004000027

PATIENT
  Sex: Male

DRUGS (1)
  1. ALIMTA [Suspect]
     Indication: NON-SMALL CELL LUNG CANCER
     Dosage: 850 MG, PER CYCLE
     Route: 042
     Dates: start: 20100223, end: 20100223

REACTIONS (2)
  - HAEMOPTYSIS [None]
  - NEOPLASM MALIGNANT [None]
